FAERS Safety Report 10149930 (Version 2)
Quarter: 2014Q2

REPORT INFORMATION
  Report Type: Spontaneous
  Country: JP (occurrence: JP)
  Receive Date: 20140502
  Receipt Date: 20140502
  Transmission Date: 20141212
  Serious: Yes (Other)
  Sender: FDA-Public Use
  Company Number: JP-MALLINCKRODT-T201305173

PATIENT
  Age: 26 Year
  Sex: Female
  Weight: 75 kg

DRUGS (33)
  1. METHADONE [Suspect]
     Indication: CANCER PAIN
     Dosage: 15 MG (45 MG DAILY DOSE)
     Route: 048
     Dates: start: 20130509, end: 20130618
  2. METHADONE [Suspect]
     Dosage: 25 MG (50 MG DAILY DOSE)
     Route: 048
     Dates: start: 20130619, end: 20130709
  3. METHADONE [Suspect]
     Dosage: 35 MG (70 MG DAILY DOSE)
     Route: 048
     Dates: start: 20130710, end: 20130903
  4. METHADONE [Suspect]
     Dosage: 85 MG DAILY DOSE
     Route: 048
     Dates: start: 20130904, end: 20130911
  5. METHADONE [Suspect]
     Dosage: 50 MG (100 MG DAILY DOSE)
     Route: 048
     Dates: start: 20130912, end: 20131013
  6. METHADONE [Suspect]
     Dosage: 45 MG (90 MG DAILY DOSE)
     Route: 048
     Dates: start: 20131014, end: 20131017
  7. METHADONE [Suspect]
     Dosage: 35 MG (105 MG DAILY DOSE)
     Route: 048
     Dates: start: 20131018, end: 20131218
  8. METHADONE [Suspect]
     Dosage: 40 MG (120 MG DAILY DOSE)
     Route: 048
     Dates: start: 20131219, end: 20140113
  9. METHADONE [Suspect]
     Dosage: 45 MG (135 MG DAILY DOSE)
     Route: 048
     Dates: start: 20140114, end: 20140126
  10. METHADONE [Suspect]
     Dosage: 50 MG (150 MG DAILY DOSE)
     Route: 048
     Dates: start: 20140127
  11. VOLTAREN [Suspect]
     Indication: PRODUCT USED FOR UNKNOWN INDICATION
     Dosage: 75 MG, UNK
     Route: 048
     Dates: start: 20131121, end: 20140114
  12. LYRICA [Concomitant]
     Dosage: 150 MG, UNK
     Route: 048
     Dates: start: 20130411, end: 20140108
  13. LYRICA [Concomitant]
     Dosage: 50 UNK, UNK
     Route: 048
     Dates: start: 20140109, end: 20140116
  14. LYRICA [Concomitant]
     Dosage: 25 UNK, UNK
     Route: 048
     Dates: start: 20140117, end: 20140123
  15. BETANIS [Concomitant]
     Dosage: 50 MG, UNK
     Route: 048
     Dates: end: 20131024
  16. MIYA BM [Concomitant]
     Dosage: 2 DF, UNK
     Route: 048
  17. XYLOCAINE [Concomitant]
     Dosage: UNK
     Route: 061
  18. HIRUDOID [Concomitant]
     Dosage: UNK
     Route: 061
  19. MAGMITT [Concomitant]
     Dosage: 330 MG, UNK
     Route: 048
  20. PRORENAL [Concomitant]
     Dosage: 30 ?G, UNK
     Route: 048
     Dates: start: 20130820
  21. SPIROPENT [Concomitant]
     Dosage: 40 ?G, UNK
     Route: 048
     Dates: start: 20131025, end: 20131122
  22. BUP-4 [Concomitant]
     Dosage: 20 MG, UNK
     Route: 048
     Dates: start: 20131123
  23. CRAVIT [Concomitant]
     Dosage: 500 MG, UNK
     Route: 048
     Dates: start: 20131120, end: 20131129
  24. PARIET [Concomitant]
     Dosage: 10 MG, UNK
     Route: 048
     Dates: start: 20131121
  25. FLOMOX [Concomitant]
     Dosage: 300 MG, UNK
     Route: 048
     Dates: start: 20131130, end: 20131205
  26. AUGMENTIN [Concomitant]
     Dosage: 750 MG, UNK
     Route: 048
     Dates: start: 20131206, end: 20131228
  27. MUCOSTA [Concomitant]
     Dosage: 300 MG, UNK
     Route: 048
     Dates: start: 20131206, end: 20131220
  28. CALONAL [Concomitant]
     Dosage: 2400 MG, UNK
     Route: 048
     Dates: start: 20140106
  29. NAIXAN [Concomitant]
     Dosage: 600 MG, UNK
     Route: 048
     Dates: start: 20140115
  30. ARGAMATE [Concomitant]
     Dosage: 3 DF, UNK
     Route: 048
     Dates: start: 20140117, end: 20140122
  31. DEPAKENE-R [Concomitant]
     Dosage: 200 MG, UNK
     Route: 048
     Dates: start: 20140120, end: 20140128
  32. DEPAKENE-R [Concomitant]
     Dosage: 400 MG, UNK
     Route: 048
     Dates: start: 20140129, end: 20140207
  33. DEPAKENE-R [Concomitant]
     Dosage: 600 MG, UNK
     Route: 048
     Dates: start: 20140208

REACTIONS (5)
  - Pyelonephritis [Recovering/Resolving]
  - Hyperkalaemia [Recovering/Resolving]
  - Urinary tract infection [Recovering/Resolving]
  - Depressive symptom [Not Recovered/Not Resolved]
  - Somnolence [Recovering/Resolving]
